FAERS Safety Report 10563447 (Version 1)
Quarter: 2014Q4

REPORT INFORMATION
  Report Type: Spontaneous
  Country: GB (occurrence: GB)
  Receive Date: 20141104
  Receipt Date: 20141104
  Transmission Date: 20150529
  Serious: Yes (Other)
  Sender: FDA-Public Use
  Company Number: GB-SA-2014SA146979

PATIENT
  Age: 65 Year
  Sex: Female
  Weight: 64 kg

DRUGS (11)
  1. ATORVASTATIN [Concomitant]
     Active Substance: ATORVASTATIN
     Dates: start: 20140703
  2. INDAPAMIDE. [Suspect]
     Active Substance: INDAPAMIDE
     Route: 065
  3. APIDRA [Concomitant]
     Active Substance: INSULIN GLULISINE
     Dates: start: 20140731, end: 20140828
  4. METFORMIN [Concomitant]
     Active Substance: METFORMIN HYDROCHLORIDE
     Dates: start: 20140703
  5. ALENDRONIC ACID [Concomitant]
     Active Substance: ALENDRONIC ACID
     Dates: start: 20140703
  6. LOSARTAN [Concomitant]
     Active Substance: LOSARTAN
     Dates: start: 20140703
  7. SERETIDE [Concomitant]
     Active Substance: FLUTICASONE FUROATE\SALMETEROL XINAFOATE
     Dates: start: 20140703
  8. IPRATROPIUM BROMIDE. [Concomitant]
     Active Substance: IPRATROPIUM BROMIDE
     Dates: start: 20140721
  9. LERCANIDIPINE HYDROCHLORIDE [Concomitant]
     Active Substance: LERCANIDIPINE HYDROCHLORIDE
     Dates: start: 20140703
  10. ADCAL [Concomitant]
     Dates: start: 20140703
  11. VENTOLINE [Concomitant]
     Active Substance: ALBUTEROL
     Dates: start: 20140703, end: 20140926

REACTIONS (1)
  - Tongue ulceration [Recovering/Resolving]

NARRATIVE: CASE EVENT DATE: 20141001
